FAERS Safety Report 16930483 (Version 1)
Quarter: 2019Q4

REPORT INFORMATION
  Report Type: Spontaneous
  Country: MX (occurrence: MX)
  Receive Date: 20191017
  Receipt Date: 20191017
  Transmission Date: 20200122
  Serious: Yes (Other)
  Sender: FDA-Public Use
  Company Number: NVSC2019MX005592

PATIENT
  Age: 19 Month
  Sex: Male

DRUGS (11)
  1. ETOPOSIDE. [Suspect]
     Active Substance: ETOPOSIDE
     Dosage: 100 MG/M2, QD IN 3 H ON DAYS 2-4
     Route: 042
  2. FOLINIC ACID [Suspect]
     Active Substance: LEUCOVORIN
     Indication: LYMPHOMA
     Dosage: 15 MG/M2
     Route: 042
  3. IFOSFAMIDE. [Suspect]
     Active Substance: IFOSFAMIDE
     Dosage: 1500 MG/M2, QH ON DAYS 2-4
     Route: 065
  4. MESNA. [Suspect]
     Active Substance: MESNA
     Indication: LYMPHOMA
     Dosage: 500 MG/M2 OR 12 DOSES STARTING ON DAY 1
     Route: 042
  5. METHOTREXATE. [Suspect]
     Active Substance: METHOTREXATE
     Dosage: 10 MG/M2, QW FOR 5 WEEKS
     Route: 030
  6. ETOPOSIDE. [Suspect]
     Active Substance: ETOPOSIDE
     Indication: LYMPHOMA
     Dosage: 200 MG/M2 IN 3 H FOR 12 DOSES STARTING ON DAY 1
     Route: 042
  7. DEXAMETHASONE. [Suspect]
     Active Substance: DEXAMETHASONE
     Indication: LYMPHOMA
     Dosage: 40 MG/M2, Q8H
     Route: 042
  8. METHOTREXATE. [Suspect]
     Active Substance: METHOTREXATE
     Indication: LYMPHOMA
     Dosage: 5000 MG/M2, QD (24 H INFUSION ON DAY 1)
     Route: 042
  9. IFOSFAMIDE. [Suspect]
     Active Substance: IFOSFAMIDE
     Indication: LYMPHOMA
     Dosage: 2000 MG/M2, QD ON DAYS 2-4
     Route: 065
  10. L-ASPARAGINASE [Suspect]
     Active Substance: ASPARAGINASE
     Indication: LYMPHOMA
     Dosage: 600 U/M2 ON DAYS 8, 10, 12, 14, 16, 18, 20
     Route: 065
  11. MESNA. [Suspect]
     Active Substance: MESNA
     Dosage: 500 MG/M2, Q6H
     Route: 042

REACTIONS (3)
  - Septic shock [Unknown]
  - Product use issue [Unknown]
  - Haematotoxicity [Unknown]
